FAERS Safety Report 8267562-8 (Version None)
Quarter: 2012Q2

REPORT INFORMATION
  Report Type: 
  Country: None (occurrence: None)
  Receive Date: 20120404
  Receipt Date: 20120402
  Transmission Date: 20120825
  Serious: Yes (Hospitalization, Other)
  Sender: FDA-Public Use
  Company Number: ADR-2010-9006

PATIENT
  Age: 48 Year
  Sex: Male

DRUGS (1)
  1. LIORESAL [Suspect]
     Indication: MUSCLE SPASTICITY
     Dosage: 149.9 MCG, DAILY, INTRA
     Route: 037

REACTIONS (6)
  - INFECTION [None]
  - MUSCLE SPASTICITY [None]
  - HYPOTONIA [None]
  - CONDITION AGGRAVATED [None]
  - DEVICE KINK [None]
  - GENERAL PHYSICAL HEALTH DETERIORATION [None]
